FAERS Safety Report 5830998-6 (Version None)
Quarter: 2008Q3

REPORT INFORMATION
  Report Type: 
  Country: None (occurrence: None)
  Receive Date: 20080801
  Receipt Date: 20080307
  Transmission Date: 20090109
  Serious: No
  Sender: FDA-Public Use
  Company Number: US-BRISTOL-MYERS SQUIBB COMPANY-14107486

PATIENT
  Age: 67 Year
  Sex: Female
  Weight: 82 kg

DRUGS (8)
  1. COUMADIN [Suspect]
     Dosage: CURRENT: 5MG, 2 TABLETS DAILY (NDC# 00056017270); AS HIGH DOSE AS: 15MG
     Dates: start: 20071101
  2. LASIX [Concomitant]
  3. AMIODARONE [Concomitant]
  4. LOPRESSOR [Concomitant]
  5. CRESTOR [Concomitant]
  6. POTASSIUM CHLORIDE [Concomitant]
  7. LOPID [Concomitant]
  8. ZETIA [Concomitant]

REACTIONS (1)
  - INTERNATIONAL NORMALISED RATIO DECREASED [None]
